FAERS Safety Report 11832927 (Version 1)
Quarter: 2015Q4

REPORT INFORMATION
  Report Type: Spontaneous
  Country: US (occurrence: US)
  Receive Date: 20151214
  Receipt Date: 20151214
  Transmission Date: 20160305
  Serious: No
  Sender: FDA-Public Use
  Company Number: US-TORRENT-00001028

PATIENT
  Sex: Female

DRUGS (1)
  1. TELMISARTAN TABLET [Suspect]
     Active Substance: TELMISARTAN
     Indication: HYPERTENSION

REACTIONS (2)
  - Product substitution issue [Unknown]
  - Constipation [Unknown]
